FAERS Safety Report 17596039 (Version 3)
Quarter: 2020Q2

REPORT INFORMATION
  Report Type: Report from Study
  Country: None (occurrence: BR)
  Receive Date: 20200330
  Receipt Date: 20200424
  Transmission Date: 20200713
  Serious: No
  Sender: FDA-Public Use
  Company Number: BR-ABBVIE-20K-020-3340650-00

PATIENT
  Age: 39 Year
  Sex: Male
  Weight: 80 kg

DRUGS (3)
  1. HUMIRA [Suspect]
     Active Substance: ADALIMUMAB
     Route: 058
  2. HUMIRA [Suspect]
     Active Substance: ADALIMUMAB
     Indication: ANKYLOSING SPONDYLITIS
     Route: 058
     Dates: start: 20191024
  3. HUMIRA [Suspect]
     Active Substance: ADALIMUMAB
     Route: 058

REACTIONS (10)
  - Gait disturbance [Not Recovered/Not Resolved]
  - Weight decreased [Unknown]
  - Musculoskeletal chest pain [Not Recovered/Not Resolved]
  - Peripheral swelling [Not Recovered/Not Resolved]
  - Infection [Unknown]
  - Myalgia [Not Recovered/Not Resolved]
  - Pelvic pain [Unknown]
  - Joint swelling [Recovered/Resolved]
  - Ligament pain [Unknown]
  - Chest pain [Unknown]

NARRATIVE: CASE EVENT DATE: 20200321
